FAERS Safety Report 9961296 (Version 2)
Quarter: 2014Q1

REPORT INFORMATION
  Report Type: Spontaneous
  Country: US (occurrence: US)
  Receive Date: 20140305
  Receipt Date: 20140313
  Transmission Date: 20141002
  Serious: No
  Sender: FDA-Public Use
  Company Number: US-BAYER-2014-033867

PATIENT
  Age: 53 Year
  Sex: Female
  Weight: 63 kg

DRUGS (3)
  1. ALEVE CAPLET [Suspect]
     Indication: ARTHRALGIA
     Dosage: 1 DF, UNK
     Route: 048
     Dates: start: 20140210
  2. ALEVE CAPLET [Suspect]
     Indication: HOT FLUSH
  3. LEVOTHYROXINE [Concomitant]

REACTIONS (2)
  - Pre-existing condition improved [None]
  - Intentional drug misuse [None]
